FAERS Safety Report 10382343 (Version 1)
Quarter: 2014Q3

REPORT INFORMATION
  Report Type: Spontaneous
  Country: US (occurrence: None)
  Receive Date: 20140811
  Receipt Date: 20140811
  Transmission Date: 20150326
  Serious: Yes (Hospitalization)
  Sender: FDA-Public Use
  Company Number: 2475096

PATIENT
  Age: 24 Year
  Sex: Male

DRUGS (1)
  1. KETAMINE HYDROCHLORIDE. [Suspect]
     Active Substance: KETAMINE HYDROCHLORIDE

REACTIONS (15)
  - Chills [None]
  - Drug abuse [None]
  - Pyrexia [None]
  - Urinary tract infection [None]
  - Pollakiuria [None]
  - Cystitis [None]
  - Urinary incontinence [None]
  - Micturition urgency [None]
  - Ataxia [None]
  - Hydronephrosis [None]
  - Anxiety [None]
  - Hydroureter [None]
  - Discomfort [None]
  - Blood urine present [None]
  - Bladder disorder [None]
